FAERS Safety Report 9003582 (Version 3)
Quarter: 2013Q4

REPORT INFORMATION
  Report Type: Spontaneous
  Country: US (occurrence: US)
  Receive Date: 20130108
  Receipt Date: 20131105
  Transmission Date: 20140711
  Serious: Yes (Death, Hospitalization, Disabling, Other)
  Sender: FDA-Public Use
  Company Number: US-009507513-1301USA000731

PATIENT
  Sex: Female

DRUGS (3)
  1. FOSAMAX [Suspect]
     Indication: OSTEOPOROSIS
     Dosage: 70 MG, QW
     Route: 048
     Dates: end: 200808
  2. FOSAMAX PLUS D [Suspect]
     Indication: OSTEOPOROSIS
     Dosage: 70 MG/2800 IU WEEKLY IN AM
     Route: 048
  3. ALENDRONATE SODIUM [Suspect]
     Indication: OSTEOPOROSIS
     Dosage: 70 MG, QW IN AM
     Route: 048
     Dates: start: 200808, end: 20101202

REACTIONS (45)
  - Femur fracture [Not Recovered/Not Resolved]
  - Open reduction of fracture [Not Recovered/Not Resolved]
  - Internal fixation of fracture [Unknown]
  - Internal fixation of fracture [Unknown]
  - Fracture delayed union [Unknown]
  - Fracture delayed union [Unknown]
  - Femur fracture [Not Recovered/Not Resolved]
  - Femur fracture [Not Recovered/Not Resolved]
  - Osteoporosis [Not Recovered/Not Resolved]
  - Pneumonia aspiration [Fatal]
  - Pneumonia [Fatal]
  - Cerebrovascular accident [Unknown]
  - Dementia [Unknown]
  - Deafness [Unknown]
  - Fall [Unknown]
  - Cervical vertebral fracture [Unknown]
  - Failure to thrive [Unknown]
  - Pain management [Unknown]
  - Device breakage [Unknown]
  - Appendicectomy [Unknown]
  - Essential hypertension [Unknown]
  - Atrial fibrillation [Unknown]
  - Type 2 diabetes mellitus [Unknown]
  - Hyperlipidaemia [Unknown]
  - Age-related macular degeneration [Unknown]
  - Peripheral vascular disorder [Unknown]
  - Insomnia [Unknown]
  - Eschar [Unknown]
  - Hallucination, auditory [Unknown]
  - Osteopenia [Unknown]
  - Spinal osteoarthritis [Unknown]
  - Intervertebral disc space narrowing [Unknown]
  - Cervical spinal stenosis [Unknown]
  - Synovial cyst [Unknown]
  - Intervertebral disc protrusion [Unknown]
  - Joint dislocation [Unknown]
  - Spondylolisthesis [Unknown]
  - Spinal cord compression [Unknown]
  - Dyspnoea [Unknown]
  - Cardiomegaly [Unknown]
  - Aortic calcification [Unknown]
  - Traumatic arthropathy [Unknown]
  - Asthenia [Unknown]
  - Arthralgia [Unknown]
  - Oedema peripheral [Unknown]
